FAERS Safety Report 19179491 (Version 1)
Quarter: 2021Q2

REPORT INFORMATION
  Report Type: Spontaneous
  Country: US (occurrence: US)
  Receive Date: 20210423
  Receipt Date: 20210423
  Transmission Date: 20210717
  Serious: Yes (Hospitalization)
  Sender: FDA-Public Use
  Company Number: None

PATIENT
  Age: 68 Year
  Sex: Male
  Weight: 73.2 kg

DRUGS (1)
  1. REVLIMID [Suspect]
     Active Substance: LENALIDOMIDE
     Indication: PLASMA CELL MYELOMA
     Route: 048
     Dates: start: 20201101

REACTIONS (5)
  - Fall [None]
  - Jaundice cholestatic [None]
  - Therapy interrupted [None]
  - Asthenia [None]
  - Bile duct stent insertion [None]

NARRATIVE: CASE EVENT DATE: 20210413
